FAERS Safety Report 6705023-5 (Version None)
Quarter: 2010Q2

REPORT INFORMATION
  Report Type: 
  Country: None (occurrence: None)
  Receive Date: 20100430
  Receipt Date: 20100423
  Transmission Date: 20101027
  Serious: Yes (Hospitalization)
  Sender: FDA-Public Use
  Company Number: B0611868A

PATIENT
  Sex: Male
  Weight: 3.8 kg

DRUGS (1)
  1. ZOVIRAX [Suspect]
     Indication: INFECTION PROPHYLAXIS
     Dosage: 75MG FOUR TIMES PER DAY
     Route: 048
     Dates: start: 20091201

REACTIONS (4)
  - CEREBRAL INFARCTION [None]
  - CONVULSION [None]
  - MOOD ALTERED [None]
  - PARALYSIS [None]
